FAERS Safety Report 7214460-4 (Version None)
Quarter: 2011Q1

REPORT INFORMATION
  Report Type: 
  Country: None (occurrence: None)
  Receive Date: 20110107
  Receipt Date: 20110104
  Transmission Date: 20110831
  Serious: Yes (Life-Threatening, Hospitalization, Other)
  Sender: FDA-Public Use
  Company Number: PHHY2010NL71515

PATIENT
  Sex: Male

DRUGS (6)
  1. S-OIV FOCETRIA 7.5AG 100% MF59 [Suspect]
     Route: 064
     Dates: start: 20091209, end: 20091209
  2. S-OIV FOCETRIA 7.5AG 100% MF59 [Suspect]
     Indication: IMMUNISATION
     Route: 064
     Dates: start: 20091118, end: 20091118
  3. ANALGESICS [Concomitant]
     Route: 064
  4. SYNTOCINON [Suspect]
  5. TRACTOCILE [Concomitant]
     Route: 064
  6. EPIDURAL PAIN MEDICATION [Suspect]
     Indication: PAIN
     Dosage: UNK
     Route: 042
     Dates: start: 20091128, end: 20091128

REACTIONS (5)
  - DRUG EXPOSURE DURING PREGNANCY [None]
  - CAESAREAN SECTION [None]
  - FOETAL DISORDER [None]
  - MATERNAL DRUGS AFFECTING FOETUS [None]
  - BRADYCARDIA FOETAL [None]
